FAERS Safety Report 6780923-9 (Version None)
Quarter: 2010Q2

REPORT INFORMATION
  Report Type: 
  Country: None (occurrence: None)
  Receive Date: 20100621
  Receipt Date: 20100611
  Transmission Date: 20101027
  Serious: Yes (Hospitalization)
  Sender: FDA-Public Use
  Company Number: US-JNJFOC-20100506992

PATIENT
  Age: 58 Year
  Sex: Male
  Weight: 122.47 kg

DRUGS (13)
  1. CHILDREN'S TYLENOL PLUS MULTI-SYMPTOM COLD [Suspect]
     Indication: RHINORRHOEA
     Route: 048
  2. DIOVAN HCT [Concomitant]
     Indication: HYPERTENSION
     Route: 048
  3. COZAAR [Concomitant]
     Indication: BLOOD PRESSURE
     Route: 048
  4. ASPIRIN [Concomitant]
     Indication: PROPHYLAXIS
     Route: 048
  5. PLAVIX [Concomitant]
     Indication: PROPHYLAXIS
     Route: 048
  6. GLYBURIDE AND METFORMIN HYDROCHLORIDE [Concomitant]
     Indication: DIABETES MELLITUS
     Route: 048
  7. NOVOLOG [Concomitant]
     Indication: DIABETES MELLITUS
     Route: 050
  8. NOVOLOG [Concomitant]
     Route: 050
  9. KLONOPIN [Concomitant]
     Indication: SLEEP APNOEA SYNDROME
     Route: 048
  10. SEROQUEL [Concomitant]
     Indication: INSOMNIA
     Route: 048
  11. METOPROLOL TARTRATE [Concomitant]
     Indication: CARDIAC DISORDER
     Route: 048
  12. COMBIVENT [Concomitant]
     Indication: DYSPNOEA
     Route: 055
  13. NASONEX [Concomitant]
     Indication: DYSPNOEA
     Route: 055

REACTIONS (2)
  - PNEUMONIA [None]
  - PRODUCT QUALITY ISSUE [None]
